FAERS Safety Report 6694698-5 (Version None)
Quarter: 2010Q2

REPORT INFORMATION
  Report Type: 
  Country: None (occurrence: None)
  Receive Date: 20100423
  Receipt Date: 20100420
  Transmission Date: 20101027
  Serious: Yes (Death, Hospitalization)
  Sender: FDA-Public Use
  Company Number: A0776696A

PATIENT
  Age: 67 Year
  Sex: Male
  Weight: 63.6 kg

DRUGS (11)
  1. AVANDIA [Suspect]
     Dosage: 8MG PER DAY
     Route: 048
     Dates: start: 20021220, end: 20061122
  2. DIABINESE [Concomitant]
  3. COZAAR [Concomitant]
  4. VERAPAMIL [Concomitant]
  5. NIASPAN [Concomitant]
  6. LISINOPRIL [Concomitant]
  7. SODIUM BICARBONATE [Concomitant]
  8. MULTI-VITAMIN [Concomitant]
  9. CARBIDOPA [Concomitant]
  10. LEVODOPA [Concomitant]
  11. INSULIN [Concomitant]

REACTIONS (11)
  - AORTIC STENOSIS [None]
  - CARDIO-RESPIRATORY ARREST [None]
  - CARDIOGENIC SHOCK [None]
  - GASTROINTESTINAL HAEMORRHAGE [None]
  - HYPOTENSION [None]
  - HYPOXIA [None]
  - METABOLIC ACIDOSIS [None]
  - MYOCARDIAL INFARCTION [None]
  - PULMONARY OEDEMA [None]
  - RENAL FAILURE ACUTE [None]
  - RESPIRATORY FAILURE [None]
